FAERS Safety Report 7605571-X (Version None)
Quarter: 2011Q3

REPORT INFORMATION
  Report Type: 
  Country: None (occurrence: None)
  Receive Date: 20110713
  Receipt Date: 20110705
  Transmission Date: 20111222
  Serious: No
  Sender: FDA-Public Use
  Company Number: US-B.I. PHARMACEUTICALS,INC./RIDGEFIELD-2011-BP-03770BP

PATIENT
  Sex: Female

DRUGS (14)
  1. VITAMIN B-12 [Concomitant]
  2. ASPIRIN [Concomitant]
  3. AMBIEN [Concomitant]
  4. CARDIZEM [Concomitant]
     Indication: HYPERTENSION
     Dosage: 120 MG
     Route: 048
  5. CAL/MAG [Concomitant]
  6. TYLENOL-500 [Concomitant]
     Indication: ARTHRITIS
     Route: 048
  7. OXYBUTYNIN [Concomitant]
  8. LABETALOL HCL [Concomitant]
     Indication: HYPERTENSION
     Dosage: 400 MG
     Route: 048
  9. D-3 [Concomitant]
  10. CELEBREX [Concomitant]
  11. PRADAXA [Suspect]
     Dosage: 150 MG
     Route: 048
     Dates: start: 20110501
  12. PRADAXA [Suspect]
     Indication: ATRIAL FIBRILLATION
     Dosage: 300 MG
     Route: 048
     Dates: start: 20110129, end: 20110130
  13. LORAZEPAM [Concomitant]
     Indication: ANXIETY
  14. RANITIDINE [Concomitant]
     Indication: DYSPEPSIA
     Dosage: 300 MG

REACTIONS (10)
  - BLOOD URINE PRESENT [None]
  - PALPITATIONS [None]
  - EPISTAXIS [None]
  - NAUSEA [None]
  - CONTUSION [None]
  - FALL [None]
  - OEDEMA PERIPHERAL [None]
  - HAEMORRHAGE [None]
  - LETHARGY [None]
  - DYSPEPSIA [None]
